FAERS Safety Report 5016533-3 (Version None)
Quarter: 2006Q2

REPORT INFORMATION
  Report Type: 
  Country: None (occurrence: None)
  Receive Date: 20060602
  Receipt Date: 20060524
  Transmission Date: 20061013
  Serious: Yes (Other)
  Sender: FDA-Public Use
  Company Number: CA-JNJFOC-20060506071

PATIENT
  Sex: Female
  Weight: 58.97 kg

DRUGS (13)
  1. TYLENOL (CAPLET) [Suspect]
     Indication: ARTHRITIS
     Route: 048
  2. TYLENOL (CAPLET) [Suspect]
     Indication: MUSCLE INJURY
     Dosage: 1300 MG Q5H DURING THE DAY, NONE AT NIGHT
     Route: 048
  3. EXTRA STRENGTH TYLENOL [Suspect]
  4. EXTRA STRENGTH TYLENOL [Suspect]
     Indication: DRUG USE FOR UNKNOWN INDICATION
  5. VALIUM [Concomitant]
  6. PERCOCET [Concomitant]
  7. PERCOCET [Concomitant]
  8. QUININE SULFATE [Concomitant]
  9. ZANTAC [Concomitant]
  10. GLUCOSAMINE [Concomitant]
  11. LIPOGUARD [Concomitant]
  12. TYLENOL W/ CODEINE NO. 3 [Concomitant]
  13. LIPITOR [Concomitant]

REACTIONS (1)
  - INTESTINAL OBSTRUCTION [None]
